FAERS Safety Report 4494249-X (Version None)
Quarter: 2004Q4

REPORT INFORMATION
  Report Type: 
  Country: None (occurrence: None)
  Receive Date: 20041105
  Receipt Date: 20040511
  Transmission Date: 20050328
  Serious: Yes (Other)
  Sender: FDA-Public Use
  Company Number: PHFR2004IE02073

PATIENT
  Age: 49 Year
  Sex: Male

DRUGS (2)
  1. CLOZARIL [Suspect]
     Indication: SCHIZOPHRENIA
     Dosage: 675MG/DAY
     Route: 048
     Dates: start: 19950315
  2. AUGMENTIN '125' [Concomitant]
     Indication: URINARY TRACT INFECTION

REACTIONS (22)
  - BACILLUS INFECTION [None]
  - BILIRUBIN URINE [None]
  - BLOOD BILIRUBIN INCREASED [None]
  - BLOOD CREATININE INCREASED [None]
  - BLOOD GLUCOSE INCREASED [None]
  - BLOOD UREA INCREASED [None]
  - DEHYDRATION [None]
  - DIABETES MELLITUS [None]
  - DYSURIA [None]
  - GLUCOSE URINE PRESENT [None]
  - HAEMATURIA [None]
  - HEART RATE INCREASED [None]
  - MALAISE [None]
  - PALLOR [None]
  - PROTEIN URINE PRESENT [None]
  - PYREXIA [None]
  - TACHYCARDIA [None]
  - URINARY TRACT INFECTION [None]
  - URINE ABNORMALITY [None]
  - UROBILIN URINE PRESENT [None]
  - VOMITING [None]
  - WHITE BLOOD CELL COUNT INCREASED [None]
